FAERS Safety Report 10351390 (Version 4)
Quarter: 2014Q3

REPORT INFORMATION
  Report Type: Spontaneous
  Country: FR (occurrence: FR)
  Receive Date: 20140730
  Receipt Date: 20140819
  Transmission Date: 20150326
  Serious: Yes (Death, Hospitalization, Other)
  Sender: FDA-Public Use
  Company Number: FR-PFIZER INC-2014207726

PATIENT
  Age: 88 Year
  Sex: Male

DRUGS (14)
  1. TAHOR [Suspect]
     Active Substance: ATORVASTATIN CALCIUM
     Indication: INFARCTION
     Dosage: 10 MG, 1X/DAY
     Route: 048
     Dates: end: 20140603
  2. TRANSIPEG [Concomitant]
     Active Substance: POLYETHYLENE GLYCOL 3350
     Dosage: UNK
  3. LANSOYL [Concomitant]
     Active Substance: MINERAL OIL
     Dosage: UNK
  4. VOLTARENE [Concomitant]
     Active Substance: DICLOFENAC SODIUM
     Dosage: UNK
  5. PARACETAMOL ARROW [Suspect]
     Active Substance: ACETAMINOPHEN
     Indication: PAIN
     Dosage: 1 G, AS NEEDED (3 G DAILY MAXIMUM)
     Route: 048
     Dates: end: 20140530
  6. DOLIPRANE [Concomitant]
     Active Substance: ACETAMINOPHEN
     Dosage: UNK
  7. IMOVANE [Suspect]
     Active Substance: ZOPICLONE
     Indication: INSOMNIA
     Dosage: 1 DF, DAILY
     Route: 048
     Dates: end: 20140531
  8. PREVISCAN [Suspect]
     Active Substance: FLUINDIONE
     Indication: ATRIAL FIBRILLATION
     Dosage: 10 MG, DAILY
     Route: 048
     Dates: end: 20140601
  9. LASILIX [Suspect]
     Active Substance: FUROSEMIDE
     Indication: CARDIAC FAILURE
     Dosage: 60 MG, 3X/DAY
     Route: 048
     Dates: start: 20140529, end: 20140604
  10. DIFFU K [Suspect]
     Active Substance: POTASSIUM CHLORIDE
     Indication: HYPOKALAEMIA
     Dosage: 1 DF, 3X/DAY
     Route: 048
     Dates: start: 20140530, end: 20140602
  11. TAREG [Suspect]
     Active Substance: VALSARTAN
     Indication: HYPERTENSION
     Dosage: 40 MG, DAILY
     Route: 048
     Dates: end: 20140604
  12. CORDARONE [Suspect]
     Active Substance: AMIODARONE HYDROCHLORIDE
     Indication: ATRIAL FIBRILLATION
     Dosage: 1000 MG, WEEKLY (1 DF (200MG) 5 TIMES WEEKLY)
     Route: 048
  13. SEROPLEX [Suspect]
     Active Substance: ESCITALOPRAM OXALATE
     Indication: DEPRESSED MOOD
     Dosage: 10 MG, DAILY
     Route: 048
     Dates: end: 20140602
  14. SERESTA [Concomitant]
     Active Substance: OXAZEPAM
     Dosage: UNK
     Dates: end: 20140604

REACTIONS (7)
  - Cardiac failure [Unknown]
  - Aspiration [Fatal]
  - International normalised ratio increased [Recovered/Resolved]
  - Overdose [Unknown]
  - Hepatitis [Recovering/Resolving]
  - Incorrect route of drug administration [Fatal]
  - Infection [Unknown]

NARRATIVE: CASE EVENT DATE: 2014
